FAERS Safety Report 6662438-1 (Version None)
Quarter: 2010Q1

REPORT INFORMATION
  Report Type: 
  Country: None (occurrence: None)
  Receive Date: 20100331
  Receipt Date: 20100319
  Transmission Date: 20100710
  Serious: Yes (Life-Threatening, Hospitalization)
  Sender: FDA-Public Use
  Company Number: GB-WATSON-2010-03958

PATIENT

DRUGS (19)
  1. OMEPRAZOLE (WATSON LABORATORIES) [Suspect]
     Indication: BARRETT'S OESOPHAGUS
     Dosage: 40 MG, DAILY
     Route: 048
     Dates: start: 20100120, end: 20100223
  2. OMEPRAZOLE (WATSON LABORATORIES) [Suspect]
     Indication: GASTRIC ULCER
  3. OMEPRAZOLE (WATSON LABORATORIES) [Suspect]
     Indication: UPPER GASTROINTESTINAL HAEMORRHAGE
  4. AMIODARONE HYDROCHLORIDE [Suspect]
     Indication: SUPRAVENTRICULAR TACHYCARDIA
     Dosage: UNK
     Route: 048
     Dates: start: 20100121, end: 20100223
  5. ASPIRIN [Concomitant]
     Indication: DRUG USE FOR UNKNOWN INDICATION
  6. BISOPROLOL FUMARATE [Concomitant]
     Indication: DRUG USE FOR UNKNOWN INDICATION
  7. CLOPIDOGREL HYDROGEN SULPHATE [Concomitant]
     Indication: DRUG USE FOR UNKNOWN INDICATION
  8. CO-AMOXICLAV                       /00756801/ [Concomitant]
     Indication: DRUG USE FOR UNKNOWN INDICATION
  9. DICLOFENAC [Concomitant]
     Indication: DRUG USE FOR UNKNOWN INDICATION
  10. ENOXAPARIN SODIUM [Concomitant]
     Indication: DRUG USE FOR UNKNOWN INDICATION
  11. GAVISCON [Concomitant]
     Indication: DRUG USE FOR UNKNOWN INDICATION
  12. GLICLAZIDE [Concomitant]
     Indication: DRUG USE FOR UNKNOWN INDICATION
  13. GLYCERYL TRINITRATE [Concomitant]
     Indication: DRUG USE FOR UNKNOWN INDICATION
  14. HYDROCORTISONE [Concomitant]
     Indication: DRUG USE FOR UNKNOWN INDICATION
  15. LISINOPRIL [Concomitant]
     Indication: DRUG USE FOR UNKNOWN INDICATION
  16. METFORMIN (GLUCOPHAGE) [Concomitant]
     Indication: DRUG USE FOR UNKNOWN INDICATION
  17. PARACETAMOL [Concomitant]
     Indication: DRUG USE FOR UNKNOWN INDICATION
  18. PRAVASTATIN SODIUM [Concomitant]
     Indication: DRUG USE FOR UNKNOWN INDICATION
  19. SITAGLIPTIN [Concomitant]
     Indication: DRUG USE FOR UNKNOWN INDICATION

REACTIONS (1)
  - IDIOPATHIC THROMBOCYTOPENIC PURPURA [None]
